FAERS Safety Report 16083398 (Version 1)
Quarter: 2019Q1

REPORT INFORMATION
  Report Type: Spontaneous
  Country: CN (occurrence: CN)
  Receive Date: 20190318
  Receipt Date: 20190318
  Transmission Date: 20190418
  Serious: Yes (Other)
  Sender: FDA-Public Use
  Company Number: CN-ROCHE-2278117

PATIENT
  Age: 43 Year
  Sex: Male
  Weight: 45 kg

DRUGS (6)
  1. CETUXIMAB. [Concomitant]
     Active Substance: CETUXIMAB
     Indication: COLON CANCER
     Route: 065
     Dates: start: 20180913, end: 20190111
  2. IRINOTECAN [Concomitant]
     Active Substance: IRINOTECAN
     Indication: COLON CANCER
     Route: 065
     Dates: start: 20180913, end: 20190111
  3. CALCIUM FOLINATE [Concomitant]
     Active Substance: LEUCOVORIN CALCIUM
     Indication: COLON CANCER
     Route: 065
     Dates: start: 20180913, end: 20190111
  4. OXALIPLATIN. [Concomitant]
     Active Substance: OXALIPLATIN
     Indication: COLON CANCER
     Route: 065
     Dates: start: 20170529, end: 20170827
  5. CAPECITABINE. [Suspect]
     Active Substance: CAPECITABINE
     Indication: COLON CANCER
     Route: 065
     Dates: start: 20170529, end: 20170827
  6. 5-FLUOROURACIL [Concomitant]
     Active Substance: FLUOROURACIL
     Indication: COLON CANCER
     Route: 065
     Dates: start: 20180913, end: 20190111

REACTIONS (14)
  - Liver disorder [Unknown]
  - Hepatic cyst [Unknown]
  - Prostatic calcification [Unknown]
  - Arthropathy [Unknown]
  - Bone formation increased [Unknown]
  - Pulmonary vascular disorder [Unknown]
  - Haemangioma [Unknown]
  - Thyroid mass [Unknown]
  - Periarthritis [Unknown]
  - Peritoneal disorder [Unknown]
  - Rash [Unknown]
  - Hydronephrosis [Unknown]
  - Abdominal distension [Unknown]
  - Lymphadenopathy [Unknown]
